FAERS Safety Report 11649893 (Version 1)
Quarter: 2015Q4

REPORT INFORMATION
  Report Type: Report from Study
  Country: US (occurrence: US)
  Receive Date: 20151021
  Receipt Date: 20151021
  Transmission Date: 20160304
  Serious: No
  Sender: FDA-Public Use
  Company Number: US-CELGENEUS-USA-2015090285

PATIENT

DRUGS (4)
  1. DEXAMETHASONE. [Suspect]
     Active Substance: DEXAMETHASONE
     Indication: PLASMA CELL MYELOMA
     Route: 065
     Dates: start: 2011
  2. DEXAMETHASONE. [Suspect]
     Active Substance: DEXAMETHASONE
     Route: 065
     Dates: start: 201209
  3. REVLIMID [Suspect]
     Active Substance: LENALIDOMIDE
     Indication: PLASMA CELL MYELOMA
     Route: 048
     Dates: start: 2011
  4. REVLIMID [Suspect]
     Active Substance: LENALIDOMIDE
     Dosage: REDUCED
     Route: 048
     Dates: start: 201209

REACTIONS (5)
  - Muscle disorder [Recovered/Resolved]
  - Pain [Recovered/Resolved]
  - Somnolence [Unknown]
  - Adverse drug reaction [Unknown]
  - Spinal disorder [Recovered/Resolved]
